FAERS Safety Report 10111287 (Version 1)
Quarter: 2014Q2

REPORT INFORMATION
  Report Type: Spontaneous
  Country: US (occurrence: None)
  Receive Date: 20140421
  Receipt Date: 20140421
  Transmission Date: 20141212
  Serious: Yes (Other)
  Sender: FDA-Public Use
  Company Number: AEGR000224

PATIENT
  Age: 20 Year
  Sex: Female
  Weight: 88.9 kg

DRUGS (1)
  1. JUXTAPID (LOMITAPIDE) CAPSULE, 10MG [Suspect]
     Indication: TYPE IIA HYPERLIPIDAEMIA
     Route: 048
     Dates: start: 20130817, end: 2013

REACTIONS (1)
  - Nausea [None]
